FAERS Safety Report 21303847 (Version 1)
Quarter: 2022Q3

REPORT INFORMATION
  Report Type: Spontaneous
  Country: US (occurrence: None)
  Receive Date: 20220907
  Receipt Date: 20220907
  Transmission Date: 20221027
  Serious: No
  Sender: FDA-Public Use
  Company Number: None

PATIENT
  Age: 39 Year
  Sex: Female
  Weight: 91.99 kg

DRUGS (8)
  1. WELIREG [Suspect]
     Active Substance: BELZUTIFAN
     Dosage: FREQUENCY : DAILY;?
     Route: 048
     Dates: start: 202205
  2. HYDROCHLOROTHIAZIDE [Concomitant]
  3. FOLIC ACID [Concomitant]
  4. MECLIZINE HCI [Concomitant]
  5. METOPROLOL [Concomitant]
  6. NORCO [Concomitant]
  7. ONDANSETRON [Concomitant]
  8. ZYRTEC [Concomitant]

REACTIONS (1)
  - Disease progression [None]
